FAERS Safety Report 8209708-3 (Version None)
Quarter: 2012Q1

REPORT INFORMATION
  Report Type: 
  Country: None (occurrence: None)
  Receive Date: 20120314
  Receipt Date: 20120301
  Transmission Date: 20120608
  Serious: Yes (Hospitalization)
  Sender: FDA-Public Use
  Company Number: CN-MYLANLABS-2012S1004864

PATIENT
  Age: 76 Year
  Sex: Male

DRUGS (5)
  1. DEXAMETHASONE [Suspect]
     Indication: EPIDERMOLYSIS BULLOSA
     Route: 065
  2. METHYLPREDNISOLONE [Suspect]
     Indication: EPIDERMOLYSIS BULLOSA
     Dosage: 60 MG/DAY
     Route: 065
  3. ALLOPURINOL [Suspect]
     Dosage: 0.1G TWICE DAILY
     Route: 065
  4. IMIPENEM AND CILASTATIN [Suspect]
     Indication: EPIDERMOLYSIS BULLOSA
     Route: 065
  5. MOXIFLOXACIN [Suspect]
     Indication: EPIDERMOLYSIS BULLOSA
     Route: 065

REACTIONS (3)
  - HEPATITIS [None]
  - EPIDERMOLYSIS BULLOSA [None]
  - ZYGOMYCOSIS [None]
